FAERS Safety Report 5316462-1 (Version None)
Quarter: 2007Q2

REPORT INFORMATION
  Report Type: 
  Country: None (occurrence: None)
  Receive Date: 20070504
  Receipt Date: 20070424
  Transmission Date: 20071010
  Serious: Yes (Other)
  Sender: FDA-Public Use
  Company Number: PHBS2007BE07165

PATIENT
  Sex: Male

DRUGS (3)
  1. LESCOL XL [Suspect]
     Indication: HYPERCHOLESTEROLAEMIA
     Dosage: 20 MG/D
     Route: 048
     Dates: start: 20050101, end: 20061101
  2. LESCOL XL [Suspect]
     Dosage: 40-80 MG/D
     Route: 048
     Dates: start: 20061101, end: 20070401
  3. AVODART [Suspect]

REACTIONS (3)
  - ANGIOEDEMA [None]
  - DRUG INTERACTION [None]
  - SWELLING FACE [None]
